FAERS Safety Report 4544690-1 (Version None)
Quarter: 2005Q1

REPORT INFORMATION
  Report Type: 
  Country: None (occurrence: None)
  Receive Date: 20050103
  Receipt Date: 20050103
  Transmission Date: 20050727
  Serious: No
  Sender: FDA-Public Use
  Company Number: None

PATIENT
  Age: 62 Year
  Sex: Male
  Weight: 72.5755 kg

DRUGS (2)
  1. NAPROXEN [Suspect]
     Indication: ARTHRALGIA
     Dosage: ONE TABLET TWICE DAILY ORAL
     Route: 048
     Dates: start: 20040606, end: 20040627
  2. BENICAR HCT [Suspect]
     Indication: HYPERTENSION
     Dosage: HALF TABLET ONCE DAILY ORAL
     Route: 048
     Dates: start: 20030926, end: 20041231

REACTIONS (3)
  - BLOOD PRESSURE INCREASED [None]
  - FLUID RETENTION [None]
  - WEIGHT INCREASED [None]
